FAERS Safety Report 6609006-5 (Version None)
Quarter: 2010Q1

REPORT INFORMATION
  Report Type: 
  Country: None (occurrence: None)
  Receive Date: 20100301
  Receipt Date: 20100218
  Transmission Date: 20100710
  Serious: Yes (Other)
  Sender: FDA-Public Use
  Company Number: US-BAYER-201012016BCC

PATIENT
  Age: 67 Year
  Sex: Female
  Weight: 91 kg

DRUGS (9)
  1. ASPIRIN [Suspect]
     Indication: DIABETES MELLITUS
     Dosage: TOTAL DAILY DOSE: 24 DF  UNIT DOSE: 1 DF
     Route: 048
     Dates: start: 20090805, end: 20090808
  2. ASPIRIN [Suspect]
     Dosage: TOTAL DAILY DOSE: 1 DF  UNIT DOSE: 1 DF
     Route: 048
  3. METFORMIN HYDROCHLORIDE [Concomitant]
     Route: 065
  4. ASPIRIN [Concomitant]
     Route: 048
  5. INSULIN [Concomitant]
     Route: 065
  6. EXCEDRIN (MIGRAINE) [Concomitant]
     Route: 065
  7. ONE A DAY VITAMINS [Concomitant]
     Route: 065
  8. ALBUTEROL SULATE [Concomitant]
     Route: 045
  9. FAMOTIDINE [Concomitant]

REACTIONS (6)
  - ALOPECIA [None]
  - ANXIETY [None]
  - ASTHMA [None]
  - DYSPNOEA [None]
  - HEART RATE INCREASED [None]
  - MYOCARDIAL INFARCTION [None]
